FAERS Safety Report 4294677-1 (Version None)
Quarter: 2004Q1

REPORT INFORMATION
  Report Type: 
  Country: None (occurrence: None)
  Receive Date: 20040213
  Receipt Date: 20030918
  Transmission Date: 20041129
  Serious: Yes (Life-Threatening, Other)
  Sender: FDA-Public Use
  Company Number: DE-GLAXOSMITHKLINE-D0041992A

PATIENT
  Age: 68 Year
  Sex: Female
  Weight: 67 kg

DRUGS (8)
  1. AVANDIA [Suspect]
     Indication: DIABETES MELLITUS
     Route: 048
     Dates: start: 20030305, end: 20030101
  2. NORVASC [Concomitant]
     Indication: HYPERTENSION
     Dosage: 5MG PER DAY
     Route: 048
  3. GLUCOPHAGE [Concomitant]
     Indication: DIABETES MELLITUS
     Dosage: 1000MG TWICE PER DAY
     Route: 048
     Dates: start: 20021001
  4. BELOC ZOK FORTE [Concomitant]
     Indication: HYPERTENSION
     Dosage: 190MG TWICE PER DAY
     Route: 048
  5. KARVEZIDE [Concomitant]
     Dosage: 315.5MG PER DAY
     Route: 048
     Dates: start: 20020701
  6. ASS [Concomitant]
     Dosage: 100MG PER DAY
     Route: 048
     Dates: start: 20020701
  7. THYREOTOM [Concomitant]
     Indication: HYPOTHYROIDISM
     Route: 048
  8. SORTIS [Concomitant]
     Dosage: 20MG UNKNOWN
     Route: 048

REACTIONS (7)
  - ACCIDENTAL OVERDOSE [None]
  - ANAEMIA [None]
  - DYSPNOEA [None]
  - FATIGUE [None]
  - OEDEMA PERIPHERAL [None]
  - PULMONARY OEDEMA [None]
  - RENAL FAILURE [None]
